FAERS Safety Report 8673762 (Version 2)
Quarter: 2013Q2

REPORT INFORMATION
  Report Type: Spontaneous
  Country: US (occurrence: None)
  Receive Date: 20120405
  Receipt Date: 20120628
  Transmission Date: 20140414
  Serious: Yes (Other)
  Sender: FDA-Public Use
  Company Number: PHEH2008US07853

PATIENT
  Sex: Female

DRUGS (1)
  1. RECLAST [Suspect]
     Dosage: UNK
     Dates: start: 20080829

REACTIONS (5)
  - INFLUENZA LIKE ILLNESS [None]
  - BONE PAIN [None]
  - GAIT DISTURBANCE [None]
  - PYREXIA [None]
  - MALAISE [None]
